FAERS Safety Report 9390336 (Version 3)
Quarter: 2013Q4

REPORT INFORMATION
  Report Type: Spontaneous
  Country: FR (occurrence: FR)
  Receive Date: 20130709
  Receipt Date: 20131029
  Transmission Date: 20140711
  Serious: Yes (Hospitalization)
  Sender: FDA-Public Use
  Company Number: FR-ROCHE-1245855

PATIENT
  Age: 84 Year
  Sex: Female

DRUGS (7)
  1. NAPROSYNE [Suspect]
     Indication: OSTEOARTHRITIS
     Route: 048
     Dates: start: 20130610, end: 20130614
  2. HYTACAND [Concomitant]
     Route: 048
  3. ZYLORIC [Concomitant]
     Route: 048
  4. TENORMINE (ATENOLOL) [Concomitant]
     Route: 065
  5. CHONDROSULF [Concomitant]
     Route: 048
  6. FOSAVANCE [Concomitant]
     Route: 048
  7. ALLOPURINOL [Concomitant]
     Route: 065

REACTIONS (3)
  - Bradyphrenia [Unknown]
  - Renal failure [Unknown]
  - Rhabdomyolysis [Unknown]
